FAERS Safety Report 11096529 (Version 1)
Quarter: 2015Q2

REPORT INFORMATION
  Report Type: Spontaneous
  Country: GB (occurrence: GB)
  Receive Date: 20150507
  Receipt Date: 20150507
  Transmission Date: 20150821
  Serious: Yes (Other)
  Sender: FDA-Public Use
  Company Number: GB-TEVA-558181ISR

PATIENT
  Age: 13 Day
  Sex: Female
  Weight: 2.03 kg

DRUGS (5)
  1. SYTRON [Concomitant]
     Indication: MINERAL SUPPLEMENTATION
     Dosage: 1 ML DAILY;
     Route: 048
     Dates: start: 20150415
  2. NYSTATIN. [Concomitant]
     Active Substance: NYSTATIN
     Indication: ORAL CANDIDIASIS
     Dosage: 300000 IU (INTERNATIONAL UNIT) DAILY;
     Dates: start: 20150419, end: 20150428
  3. DALIVIT [Concomitant]
     Indication: VITAMIN SUPPLEMENTATION
     Dosage: .6 ML DAILY;
     Route: 048
     Dates: start: 20150415
  4. FOLIC ACID. [Concomitant]
     Active Substance: FOLIC ACID
     Indication: VITAMIN SUPPLEMENTATION
     Dosage: 50 MICROGRAM DAILY;
     Route: 048
     Dates: start: 20150417
  5. CLOTRIMAZOLE. [Suspect]
     Active Substance: CLOTRIMAZOLE
     Dosage: 13 APPLICATIONS
     Route: 061
     Dates: start: 20150422, end: 20150423

REACTIONS (1)
  - Dermatitis contact [Recovered/Resolved]

NARRATIVE: CASE EVENT DATE: 20150422
